FAERS Safety Report 9472238 (Version 1)
Quarter: 2013Q3

REPORT INFORMATION
  Report Type: Spontaneous
  Country: US (occurrence: US)
  Receive Date: 20130823
  Receipt Date: 20130823
  Transmission Date: 20140515
  Serious: Yes (Other)
  Sender: FDA-Public Use
  Company Number: US-TEVA-427628USA

PATIENT
  Age: 66 Year
  Sex: Female

DRUGS (5)
  1. METRONIDAZOLE [Suspect]
     Indication: CLOSTRIDIUM DIFFICILE INFECTION
     Route: 065
  2. ASPIRIN [Concomitant]
     Route: 065
  3. SIMVASTATIN [Concomitant]
     Route: 065
  4. SALBUTAMOL [Concomitant]
     Dosage: NEBULISER
     Route: 065
  5. IPRATROPIUM BROMIDE [Concomitant]
     Dosage: NEBULISER
     Route: 065

REACTIONS (1)
  - Leukoencephalopathy [Recovering/Resolving]
